FAERS Safety Report 14523853 (Version 1)
Quarter: 2018Q1

REPORT INFORMATION
  Report Type: Spontaneous
  Country: HU (occurrence: HU)
  Receive Date: 20180213
  Receipt Date: 20180213
  Transmission Date: 20180509
  Serious: Yes (Hospitalization, Other)
  Sender: FDA-Public Use
  Company Number: HU-CIPLA LTD.-2018HU04055

PATIENT

DRUGS (3)
  1. ESCITALOPRAM [Suspect]
     Active Substance: ESCITALOPRAM OXALATE
     Indication: BIPOLAR DISORDER
     Dosage: 10 MG, DAILY
     Route: 048
     Dates: start: 201712, end: 201712
  2. KVENTIAX [Concomitant]
     Active Substance: QUETIAPINE FUMARATE
     Indication: BIPOLAR DISORDER
     Dosage: 32.5 MG, DAILY
     Route: 048
  3. LAMOLEP [Concomitant]
     Indication: BIPOLAR DISORDER
     Dosage: 150 MG, DAILY, 1 TABLET MORNINGS AND 2 TABLETS EVENINGS
     Route: 048
     Dates: start: 201711, end: 201712

REACTIONS (3)
  - Suicidal ideation [Recovered/Resolved]
  - Dyspnoea at rest [Recovered/Resolved]
  - Violence-related symptom [Recovered/Resolved]

NARRATIVE: CASE EVENT DATE: 201712
